FAERS Safety Report 6725590-5 (Version None)
Quarter: 2010Q2

REPORT INFORMATION
  Report Type: 
  Country: None (occurrence: None)
  Receive Date: 20100514
  Receipt Date: 20100506
  Transmission Date: 20101027
  Serious: Yes (Hospitalization)
  Sender: FDA-Public Use
  Company Number: GB-JNJFOC-20100503055

PATIENT
  Age: 93 Year
  Sex: Female

DRUGS (3)
  1. REMINYL XR [Suspect]
     Indication: DEMENTIA ALZHEIMER'S TYPE
     Route: 048
  2. HYDROXOCOBALAMINE [Concomitant]
     Indication: VITAMIN B12 DEFICIENCY
     Route: 065
  3. PARACETAMOL [Concomitant]
     Route: 065

REACTIONS (4)
  - DIZZINESS [None]
  - HYPOTENSION [None]
  - SINUS ARRHYTHMIA [None]
  - UNRESPONSIVE TO STIMULI [None]
